FAERS Safety Report 12606413 (Version 1)
Quarter: 2016Q3

REPORT INFORMATION
  Report Type: Spontaneous
  Country: PL (occurrence: PL)
  Receive Date: 20160729
  Receipt Date: 20160729
  Transmission Date: 20161109
  Serious: Yes (Other)
  Sender: FDA-Public Use
  Company Number: PL-SUN PHARMACEUTICAL INDUSTRIES LTD-2016RR-121036

PATIENT
  Age: 65 Year
  Sex: Male

DRUGS (1)
  1. GEMCITABINE [Suspect]
     Active Substance: GEMCITABINE\GEMCITABINE HYDROCHLORIDE
     Indication: DUCTAL ADENOCARCINOMA OF PANCREAS
     Dosage: 2000MG, CYCLICAL, 4.5 COURSES; ON DAYS 1 AND 7 EVERY 3 WEEKS
     Route: 042

REACTIONS (9)
  - Weight decreased [Unknown]
  - Gastrointestinal disorder [Unknown]
  - Neutropenia [Unknown]
  - Pulmonary embolism [Unknown]
  - Pain [Unknown]
  - Toxicity to various agents [Unknown]
  - Anaemia [Unknown]
  - Thrombocytopenia [Unknown]
  - Right ventricular failure [Unknown]
